FAERS Safety Report 22959942 (Version 2)
Quarter: 2023Q4

REPORT INFORMATION
  Report Type: Report from Study
  Country: US (occurrence: US)
  Receive Date: 20230920
  Receipt Date: 20231018
  Transmission Date: 20240109
  Serious: Yes (Other)
  Sender: FDA-Public Use
  Company Number: US-BEIGENE-BGN-2023-010056

PATIENT

DRUGS (4)
  1. BRUKINSA [Suspect]
     Active Substance: ZANUBRUTINIB
     Indication: Chronic lymphocytic leukaemia
     Dosage: 80 MILLIGRAM, BID
     Route: 048
     Dates: start: 20230828
  2. BRUKINSA [Suspect]
     Active Substance: ZANUBRUTINIB
     Dosage: 80 MILLIGRAM, DAILY
  3. XARELTO [Concomitant]
     Active Substance: RIVAROXABAN
  4. VENCLEXTA [Concomitant]
     Active Substance: VENETOCLAX

REACTIONS (11)
  - Haemorrhage subcutaneous [Recovering/Resolving]
  - Sinusitis [Unknown]
  - Localised infection [Unknown]
  - Blister [Unknown]
  - Constipation [Unknown]
  - Mouth haemorrhage [Unknown]
  - Immune system disorder [Unknown]
  - Productive cough [Unknown]
  - Muscular weakness [Unknown]
  - Dyspnoea [Unknown]
  - Product dose omission issue [Unknown]
